FAERS Safety Report 23080661 (Version 2)
Quarter: 2023Q4

REPORT INFORMATION
  Report Type: Spontaneous
  Country: CA (occurrence: CA)
  Receive Date: 20231018
  Receipt Date: 20231107
  Transmission Date: 20240109
  Serious: Yes (Hospitalization, Other)
  Sender: FDA-Public Use
  Company Number: CA-AMERICAN REGENT INC-2023002414

PATIENT
  Age: 30 Year
  Sex: Female

DRUGS (2)
  1. VENOFER [Suspect]
     Active Substance: IRON SUCROSE
     Indication: Iron deficiency
     Dosage: 300 MILLIGRAM IN 250 ML NS (100 MG/5ML)
     Dates: start: 20230608, end: 20230608
  2. VENOFER [Suspect]
     Active Substance: IRON SUCROSE
     Indication: Heavy menstrual bleeding

REACTIONS (7)
  - Tremor [Unknown]
  - Rash [Unknown]
  - Dizziness [Unknown]
  - Dyspnoea [Unknown]
  - Pain in extremity [Unknown]
  - Peripheral swelling [Unknown]
  - Incorrect product administration duration [Unknown]

NARRATIVE: CASE EVENT DATE: 20230608
